FAERS Safety Report 13013970 (Version 2)
Quarter: 2017Q1

REPORT INFORMATION
  Report Type: Spontaneous
  Country: US (occurrence: US)
  Receive Date: 20161209
  Receipt Date: 20170103
  Transmission Date: 20170428
  Serious: Yes (Hospitalization)
  Sender: FDA-Public Use
  Company Number: US-AMGEN-USASP2016172449

PATIENT
  Age: 52 Year
  Sex: Male

DRUGS (2)
  1. PROCRIT [Suspect]
     Active Substance: ERYTHROPOIETIN
     Indication: NEPHROGENIC ANAEMIA
     Dosage: 3000 UNIT, UNK
     Route: 042
  2. PROCRIT [Suspect]
     Active Substance: ERYTHROPOIETIN
     Dosage: 2000 UNIT, UNK
     Route: 042

REACTIONS (2)
  - Unevaluable event [Unknown]
  - Incorrect product storage [Unknown]

NARRATIVE: CASE EVENT DATE: 201612
